FAERS Safety Report 7028909-3 (Version None)
Quarter: 2010Q3

REPORT INFORMATION
  Report Type: 
  Country: None (occurrence: None)
  Receive Date: 20100913
  Receipt Date: 20100830
  Transmission Date: 20110219
  Serious: Yes (Other)
  Sender: FDA-Public Use
  Company Number: AEUSA201000316

PATIENT
  Age: 12 Year
  Sex: Female
  Weight: 84 kg

DRUGS (1)
  1. GAMUNEX [Suspect]
     Indication: HYPOGAMMAGLOBULINAEMIA
     Dosage: 475 MG/KG; QM; IV
     Route: 042
     Dates: start: 20100827, end: 20100827

REACTIONS (1)
  - CONVULSION [None]
